FAERS Safety Report 6499854-7 (Version None)
Quarter: 2009Q4

REPORT INFORMATION
  Report Type: 
  Country: None (occurrence: None)
  Receive Date: 20091214
  Receipt Date: 20091214
  Transmission Date: 20100525
  Serious: No
  Sender: FDA-Public Use
  Company Number: None

PATIENT
  Age: 42 Year
  Sex: Female
  Weight: 54.4316 kg

DRUGS (1)
  1. ZOLPIDEM [Suspect]
     Indication: INSOMNIA
     Dosage: 5 MG. AS NEEDED PO
     Route: 048
     Dates: start: 20090901, end: 20091208

REACTIONS (6)
  - ANXIETY [None]
  - DRUG EFFECT DECREASED [None]
  - DRUG TOXICITY [None]
  - HYPERHIDROSIS [None]
  - PALPITATIONS [None]
  - PARADOXICAL DRUG REACTION [None]
